FAERS Safety Report 10479119 (Version 7)
Quarter: 2019Q3

REPORT INFORMATION
  Report Type: Spontaneous
  Country: US (occurrence: US)
  Receive Date: 20140926
  Receipt Date: 20190703
  Transmission Date: 20191004
  Serious: Yes (Hospitalization)
  Sender: FDA-Public Use
  Company Number: US-PFIZER INC-2014263322

PATIENT
  Age: 70 Year
  Sex: Male
  Weight: 80.74 kg

DRUGS (17)
  1. LYRICA [Suspect]
     Active Substance: PREGABALIN
     Dosage: 300 MG, 2X/DAY
     Route: 048
     Dates: start: 20161201
  2. XANAX [Concomitant]
     Active Substance: ALPRAZOLAM
     Indication: ANXIETY
     Dosage: 0.25 MG, 3X/DAYAS NEEDED
     Route: 048
     Dates: start: 20160928
  3. LYRICA [Suspect]
     Active Substance: PREGABALIN
     Indication: NEUROPATHY PERIPHERAL
     Dosage: 225 MG, UNK
     Route: 048
  4. BETHANECHOL CHLORIDE. [Concomitant]
     Active Substance: BETHANECHOL CHLORIDE
     Dosage: 3 DF, DAILY (2 TIMES DAILY 2 TABS IN THE MORNING AND 1 TABLET IN THE EVENING)
     Route: 048
  5. COREG [Concomitant]
     Active Substance: CARVEDILOL
     Dosage: 3.125 MG, 2X/DAY [WITH MEALS]
     Route: 048
     Dates: start: 20160112
  6. FLOMAX [Concomitant]
     Active Substance: TAMSULOSIN HYDROCHLORIDE
     Indication: DYSURIA
     Dosage: UNK, 1X/DAY
     Route: 048
  7. LYRICA [Suspect]
     Active Substance: PREGABALIN
     Dosage: 150 MG, 2X/DAY
     Route: 048
     Dates: start: 1998
  8. WELLBUTRIN [Concomitant]
     Active Substance: BUPROPION HYDROCHLORIDE
     Indication: DEPRESSED MOOD
     Dosage: 150 MG, 2X/DAY
     Dates: start: 1997
  9. FLOMAX [Concomitant]
     Active Substance: TAMSULOSIN HYDROCHLORIDE
     Dosage: 0.4 MG, DAILY
     Route: 048
  10. NORCO [Concomitant]
     Active Substance: ACETAMINOPHEN\HYDROCODONE BITARTRATE
     Indication: PAIN
     Dosage: 1 DF, 4X/DAYAS NEEDED
     Route: 048
     Dates: start: 20161128
  11. DESYREL [Concomitant]
     Active Substance: TRAZODONE HYDROCHLORIDE
     Indication: INSOMNIA
     Dosage: 50 MG, AS NEEDED (NIGHTLY)
     Route: 048
     Dates: start: 20160902
  12. VITAMIN D3 [Concomitant]
     Active Substance: CHOLECALCIFEROL
     Dosage: 2000 IU, DAILY
     Route: 048
     Dates: start: 20160128
  13. LYRICA [Suspect]
     Active Substance: PREGABALIN
     Dosage: 300 MG, 2X/DAY
     Route: 048
  14. BETHANECHOL [Concomitant]
     Active Substance: BETHANECHOL
     Indication: DYSURIA
     Dosage: UNK, 3X/DAY
  15. ARICEPT [Concomitant]
     Active Substance: DONEPEZIL HYDROCHLORIDE
     Indication: DEMENTIA
     Dosage: 10 MG, 1X/DAY (DAILY AT BEDTIME)
     Route: 048
     Dates: start: 20160809
  16. VIAGRA [Concomitant]
     Active Substance: SILDENAFIL CITRATE
     Indication: ERECTILE DYSFUNCTION
     Dosage: 100 MG, AS NEEDED (1 TIME DAILY AS NEEDED)
     Route: 048
     Dates: start: 20161205
  17. FLONASE [Concomitant]
     Active Substance: FLUTICASONE PROPIONATE
     Dosage: UNK UNK, DAILY [ADMINISTER 2 SPRAYS IN EACH NOSTRIL DAILY]
     Route: 045
     Dates: start: 20161109

REACTIONS (6)
  - Product dose omission [Not Recovered/Not Resolved]
  - Pain in extremity [Unknown]
  - Product prescribing error [Unknown]
  - Hypoaesthesia [Not Recovered/Not Resolved]
  - Paraesthesia [Unknown]
  - Accident [Not Recovered/Not Resolved]

NARRATIVE: CASE EVENT DATE: 20160812
